FAERS Safety Report 7620384-0 (Version None)
Quarter: 2011Q3

REPORT INFORMATION
  Report Type: 
  Country: None (occurrence: None)
  Receive Date: 20110718
  Receipt Date: 20110718
  Transmission Date: 20111222
  Serious: Yes (Other)
  Sender: FDA-Public Use
  Company Number: None

PATIENT
  Sex: Female

DRUGS (1)
  1. SAPHRIS [Suspect]
     Indication: BIPOLAR I DISORDER
     Dosage: ONE TABLET AT NIGHT
     Route: 048
     Dates: start: 20110613, end: 20110627

REACTIONS (13)
  - DYSPHAGIA [None]
  - CONFUSIONAL STATE [None]
  - WEIGHT DECREASED [None]
  - NAUSEA [None]
  - NERVOUSNESS [None]
  - HEADACHE [None]
  - BALANCE DISORDER [None]
  - AGEUSIA [None]
  - HYPOAESTHESIA ORAL [None]
  - DRY MOUTH [None]
  - VISION BLURRED [None]
  - SPEECH DISORDER [None]
  - UNEVALUABLE EVENT [None]
